FAERS Safety Report 4328512-X (Version None)
Quarter: 2004Q1

REPORT INFORMATION
  Report Type: 
  Country: None (occurrence: None)
  Receive Date: 20040331
  Receipt Date: 20040317
  Transmission Date: 20041129
  Serious: Yes (Death)
  Sender: FDA-Public Use
  Company Number: GB-MERCK-0403GBR00201

PATIENT
  Age: 72 Year
  Sex: Male

DRUGS (4)
  1. ASPIRIN [Concomitant]
     Route: 065
  2. GLICLAZIDE [Concomitant]
     Route: 048
  3. COZAAR [Suspect]
     Indication: MYOCARDIAL INFARCTION
     Route: 048
  4. NITROGLYCERIN [Concomitant]
     Route: 065

REACTIONS (3)
  - BLOOD PRESSURE DECREASED [None]
  - HAEMORRHAGE [None]
  - HYPOVOLAEMIA [None]
